FAERS Safety Report 8182192-4 (Version None)
Quarter: 2012Q1

REPORT INFORMATION
  Report Type: 
  Country: None (occurrence: None)
  Receive Date: 20120302
  Receipt Date: 20120215
  Transmission Date: 20120608
  Serious: Yes (Life-Threatening, Other)
  Sender: FDA-Public Use
  Company Number: PHFR2012GB001187

PATIENT
  Sex: Female

DRUGS (1)
  1. ESTRADIOL VALERATE [Suspect]
     Dosage: UNK UKN, UNK

REACTIONS (7)
  - ABDOMINAL DISCOMFORT [None]
  - QUALITY OF LIFE DECREASED [None]
  - DEPRESSION [None]
  - INTESTINAL ISCHAEMIA [None]
  - BREAST CANCER [None]
  - LOSS OF CONSCIOUSNESS [None]
  - PROCTALGIA [None]
